FAERS Safety Report 6469997-2 (Version None)
Quarter: 2009Q4

REPORT INFORMATION
  Report Type: 
  Country: None (occurrence: None)
  Receive Date: 20091203
  Receipt Date: 20080513
  Transmission Date: 20100525
  Serious: Yes (Hospitalization, Other)
  Sender: FDA-Public Use
  Company Number: US-ELI_LILLY_AND_COMPANY-US200711005907

PATIENT
  Sex: Male
  Weight: 61.587 kg

DRUGS (19)
  1. PEMETREXED [Suspect]
     Indication: NON-SMALL CELL LUNG CANCER
     Dosage: 500 MG/M2, OTHER
     Route: 042
     Dates: start: 20070814
  2. FOLIC ACID [Concomitant]
     Indication: SUPPLEMENTATION THERAPY
     Dosage: 1 MG, DAILY (1/D)
     Dates: start: 20070808
  3. VITAMIN B-12 [Concomitant]
     Indication: SUPPLEMENTATION THERAPY
     Dates: start: 20070808
  4. DEXAMETHASONE TAB [Concomitant]
     Indication: PROPHYLAXIS
     Dates: start: 20070815
  5. ZITHROMAX [Concomitant]
     Dosage: UNK, UNK
     Dates: start: 20071119, end: 20071120
  6. BACLOFEN [Concomitant]
     Indication: HICCUPS
     Dates: start: 20070629
  7. DURAGESIC-100 [Concomitant]
     Indication: PAIN
     Dosage: 50 UG, OTHER
     Route: 062
     Dates: start: 20071023, end: 20071210
  8. DURAGESIC-100 [Concomitant]
     Dosage: 125 UG, OTHER
     Route: 062
     Dates: start: 20071210
  9. ADVAIR DISKUS 100/50 [Concomitant]
     Indication: CHRONIC OBSTRUCTIVE PULMONARY DISEASE
     Dates: start: 20070626
  10. ROBITUSSIN [Concomitant]
     Indication: COUGH
     Dates: start: 20070607
  11. ATIVAN [Concomitant]
     Indication: ANXIETY
     Dosage: 1 MG, EVERY 4 HRS
     Dates: start: 20070626
  12. REGLAN [Concomitant]
     Indication: NAUSEA
     Dosage: 10 MG, 4/D
     Route: 054
     Dates: start: 20070808
  13. SPIRIVA [Concomitant]
     Indication: CHRONIC OBSTRUCTIVE PULMONARY DISEASE
     Dates: start: 20070626
  14. OXYCODONE HCL [Concomitant]
     Indication: PAIN
     Dates: start: 20071017
  15. LEXAPRO [Concomitant]
     Indication: ANXIETY
     Dates: start: 20071011
  16. MORPHINE [Concomitant]
     Indication: PAIN
     Dosage: 2 MG, 2/D
     Route: 050
     Dates: end: 20071210
  17. MORPHINE [Concomitant]
     Dosage: 20 MG, AS NEEDED
     Route: 050
     Dates: start: 20071210
  18. SCOPOLAMINE [Concomitant]
  19. ISOSOURCE [Concomitant]
     Dosage: 2 D/F, 4/D

REACTIONS (3)
  - PNEUMONIA [None]
  - PNEUMONIA ASPIRATION [None]
  - TRACHEO-OESOPHAGEAL FISTULA [None]
